FAERS Safety Report 9563070 (Version 2)
Quarter: 2013Q3

REPORT INFORMATION
  Report Type: Spontaneous
  Country: US (occurrence: US)
  Receive Date: 20130927
  Receipt Date: 20130927
  Transmission Date: 20140515
  Serious: No
  Sender: FDA-Public Use
  Company Number: US-BRISTOL-MYERS SQUIBB COMPANY-16955312

PATIENT
  Age: 84 Year
  Sex: Female
  Weight: 79.36 kg

DRUGS (1)
  1. ONGLYZA TABS [Suspect]
     Dates: start: 2012

REACTIONS (2)
  - Intraocular pressure increased [Recovering/Resolving]
  - Pruritus [Recovered/Resolved]
